FAERS Safety Report 5375523-1 (Version None)
Quarter: 2007Q2

REPORT INFORMATION
  Report Type: 
  Country: None (occurrence: None)
  Receive Date: 20070629
  Receipt Date: 20070621
  Transmission Date: 20071010
  Serious: Yes (Hospitalization)
  Sender: FDA-Public Use
  Company Number: IT-ABBOTT-07P-083-0372140-00

PATIENT
  Sex: Female

DRUGS (1)
  1. MACLADIN [Suspect]
     Indication: VIRAL PHARYNGITIS
     Route: 048
     Dates: start: 20070604, end: 20070610

REACTIONS (4)
  - ERYTHEMA [None]
  - LIP OEDEMA [None]
  - PALATAL OEDEMA [None]
  - RASH [None]
